FAERS Safety Report 20922326 (Version 1)
Quarter: 2022Q2

REPORT INFORMATION
  Report Type: Spontaneous
  Country: GB (occurrence: GB)
  Receive Date: 20220607
  Receipt Date: 20220607
  Transmission Date: 20220721
  Serious: Yes (Other)
  Sender: FDA-Public Use
  Company Number: None

PATIENT
  Age: 45 Year
  Sex: Male
  Weight: 83 kg

DRUGS (15)
  1. RITUXIMAB [Suspect]
     Active Substance: RITUXIMAB
     Indication: Product used for unknown indication
     Dosage: 1.4G/11.7ML
     Route: 065
     Dates: start: 20210923
  2. CALCIUM CARBONATE [Concomitant]
     Active Substance: CALCIUM CARBONATE
     Dates: start: 20210217
  3. ALENDRONIC ACID [Concomitant]
     Active Substance: ALENDRONIC ACID
     Dates: start: 20210217
  4. AMLODIPINE [Concomitant]
     Active Substance: AMLODIPINE BESYLATE
     Dosage: EVERY MORNING
     Dates: start: 20210614
  5. CYCLOPHOSPHAMIDE [Concomitant]
     Active Substance: CYCLOPHOSPHAMIDE
     Dates: start: 20210923
  6. FOLIC ACID [Concomitant]
     Active Substance: FOLIC ACID
     Dosage: TAKE ONE DAILY ON 6 DAYS EACH WEEK BUT NOT ON M.
     Dates: start: 20210217
  7. GABAPENTIN [Concomitant]
     Active Substance: GABAPENTIN
     Dosage: TAKE ONE IN THE MORNING, ONE IN THE AFTERNOON
     Dates: start: 20210217
  8. HYPROMELLOSES [Concomitant]
     Active Substance: HYPROMELLOSES
     Dates: start: 20210217
  9. LANSOPRAZOLE [Concomitant]
     Active Substance: LANSOPRAZOLE
     Dates: start: 20210217
  10. LANTUS [Concomitant]
     Active Substance: INSULIN GLARGINE
     Dosage: 24 UNITS IN THE MORNING, 45 UNITS IN THE EVENING
     Dates: start: 20210217
  11. NOVORAPID [Concomitant]
     Active Substance: INSULIN ASPART
     Dates: start: 20210217
  12. ACETAMINOPHEN [Concomitant]
     Active Substance: ACETAMINOPHEN
     Dosage: 1-2 TO BE TAKEN UP TO FOUR TIMES DAILY
     Dates: start: 20210217
  13. PAROXETINE [Concomitant]
     Active Substance: PAROXETINE
     Dates: start: 20210614
  14. PREDNISOLONE [Concomitant]
     Active Substance: PREDNISOLONE
     Dates: start: 20210217
  15. SILDENAFIL [Concomitant]
     Active Substance: SILDENAFIL
     Dosage: USE AS DIRECTED
     Dates: start: 20210831, end: 20210901

REACTIONS (1)
  - Hypersensitivity [Recovered/Resolved]

NARRATIVE: CASE EVENT DATE: 20210924
